FAERS Safety Report 7420682-X (Version None)
Quarter: 2011Q2

REPORT INFORMATION
  Report Type: 
  Country: None (occurrence: None)
  Receive Date: 20110418
  Receipt Date: 20110406
  Transmission Date: 20111010
  Serious: Yes (Death)
  Sender: FDA-Public Use
  Company Number: CA-ROCHE-745048

PATIENT
  Sex: Female
  Weight: 30 kg

DRUGS (8)
  1. SYNTHROID [Concomitant]
  2. SERTRALINE [Concomitant]
  3. TOCILIZUMAB [Suspect]
     Route: 042
     Dates: start: 20101110, end: 20101110
  4. ACETAMINOPHEN [Concomitant]
  5. HYDROMORPHONE [Concomitant]
  6. DILAUDID [Concomitant]
  7. PREDNISONE [Concomitant]
  8. LORAZEPAM [Concomitant]

REACTIONS (1)
  - JUVENILE ARTHRITIS [None]
